FAERS Safety Report 6063985-6 (Version None)
Quarter: 2009Q1

REPORT INFORMATION
  Report Type: 
  Country: None (occurrence: None)
  Receive Date: 20090130
  Receipt Date: 20090116
  Transmission Date: 20090719
  Serious: Yes (Hospitalization)
  Sender: FDA-Public Use
  Company Number: US025326

PATIENT
  Age: 1 Year
  Sex: Female

DRUGS (1)
  1. FENTORA [Suspect]
     Dosage: ONCE BUCCAL
     Route: 002
     Dates: start: 20080825, end: 20080825

REACTIONS (4)
  - ACCIDENTAL EXPOSURE [None]
  - HEART RATE INCREASED [None]
  - RESPIRATORY RATE INCREASED [None]
  - SOMNOLENCE [None]
